FAERS Safety Report 11467861 (Version 1)
Quarter: 2015Q3

REPORT INFORMATION
  Report Type: Spontaneous
  Country: JP (occurrence: JP)
  Receive Date: 20150908
  Receipt Date: 20150908
  Transmission Date: 20151125
  Serious: Yes (Other)
  Sender: FDA-Public Use
  Company Number: JP-SA-2015SA027555

PATIENT
  Age: 76 Year
  Sex: Male

DRUGS (2)
  1. JEVTANA [Suspect]
     Active Substance: CABAZITAXEL
     Indication: PROSTATE CANCER
     Route: 042
     Dates: start: 20150225
  2. G-LASTA [Concomitant]
     Active Substance: PEGFILGRASTIM

REACTIONS (4)
  - Febrile neutropenia [Unknown]
  - White blood cell count decreased [Not Recovered/Not Resolved]
  - Interstitial lung disease [Unknown]
  - Neutrophil count decreased [Not Recovered/Not Resolved]

NARRATIVE: CASE EVENT DATE: 20150303
